FAERS Safety Report 15852851 (Version 1)
Quarter: 2018Q4

REPORT INFORMATION
  Report Type: Spontaneous
  Country: US (occurrence: US)
  Receive Date: 20181226
  Receipt Date: 20181226
  Transmission Date: 20190205
  Serious: Yes (Other)
  Sender: FDA-Public Use
  Company Number: None

PATIENT
  Age: 43 Year
  Sex: Male

DRUGS (1)
  1. GLATIRAMER 40 MG/ML [Suspect]
     Active Substance: GLATIRAMER
     Indication: MULTIPLE SCLEROSIS
     Dosage: ?          OTHER ROUTE:STOMACH + THIGH?
     Dates: start: 20181129, end: 20181215

REACTIONS (3)
  - Product substitution issue [None]
  - Injection site reaction [None]
  - Influenza like illness [None]
